FAERS Safety Report 9727824 (Version 3)
Quarter: 2014Q2

REPORT INFORMATION
  Report Type: Spontaneous
  Country: IT (occurrence: IT)
  Receive Date: 20131204
  Receipt Date: 20140407
  Transmission Date: 20141212
  Serious: Yes (Hospitalization)
  Sender: FDA-Public Use
  Company Number: IT-ROCHE-1313430

PATIENT
  Age: 47 Year
  Sex: Male
  Weight: 53 kg

DRUGS (3)
  1. ZELBORAF [Suspect]
     Indication: MALIGNANT MELANOMA
     Route: 048
     Dates: start: 20131012, end: 20131115
  2. SPRYCEL [Concomitant]
     Indication: CHRONIC MYELOID LEUKAEMIA
     Route: 048
     Dates: start: 20100423, end: 20131129
  3. OXYCONTIN [Concomitant]
     Indication: PAIN
     Route: 048
     Dates: start: 20131001, end: 20131129

REACTIONS (2)
  - Mucosal inflammation [Recovering/Resolving]
  - Skin toxicity [Recovering/Resolving]
